FAERS Safety Report 9480870 (Version 1)
Quarter: 2013Q3

REPORT INFORMATION
  Report Type: Spontaneous
  Country: US (occurrence: US)
  Receive Date: 20130828
  Receipt Date: 20130828
  Transmission Date: 20140515
  Serious: Yes (Other)
  Sender: FDA-Public Use
  Company Number: US-AMGEN-KDL130481

PATIENT
  Age: 61 Year
  Sex: Female

DRUGS (2)
  1. ENBREL [Suspect]
     Indication: RHEUMATOID ARTHRITIS
     Dosage: 50 MG, QWK
     Route: 058
     Dates: start: 20050422
  2. METHOTREXATE [Concomitant]
     Dosage: UNK UNK, QWK
     Route: 048

REACTIONS (8)
  - Swelling face [Unknown]
  - Dysarthria [Unknown]
  - Visual impairment [Unknown]
  - Eye swelling [Unknown]
  - Nervousness [Unknown]
  - Hypoaesthesia oral [Unknown]
  - Eyelid disorder [Unknown]
  - Dyspnoea [Unknown]
